FAERS Safety Report 4295969-2 (Version None)
Quarter: 2004Q1

REPORT INFORMATION
  Report Type: 
  Country: None (occurrence: None)
  Receive Date: 20040212
  Receipt Date: 20040202
  Transmission Date: 20041129
  Serious: Yes (Death)
  Sender: FDA-Public Use
  Company Number: BE-JNJFOC-20040200664

PATIENT
  Age: 83 Year
  Sex: Female

DRUGS (10)
  1. PROPULSID [Suspect]
     Indication: DIABETIC GASTROPARESIS
     Dosage: 10 MG, 3 IN 1 DAY
     Dates: start: 20030908, end: 20031224
  2. DURAGESIC [Concomitant]
  3. CORUNO (MOLSIDOMINE) [Concomitant]
  4. CARVEDILOL [Concomitant]
  5. ZESTR1L (LISINOPRIL) [Concomitant]
  6. IMOVANE (ZOPICLONE) [Concomitant]
  7. PLAVIX [Concomitant]
  8. OMEPRAZOLE [Concomitant]
  9. TRAZOLAN (TRAZODONE HYDROCHLORIDE) [Concomitant]
  10. MIXTARD (INITARD) [Concomitant]

REACTIONS (2)
  - BRONCHITIS [None]
  - UPPER RESPIRATORY TRACT INFECTION [None]
